FAERS Safety Report 22663875 (Version 3)
Quarter: 2024Q2

REPORT INFORMATION
  Report Type: Report from Study
  Country: US (occurrence: US)
  Receive Date: 20230703
  Receipt Date: 20240605
  Transmission Date: 20240716
  Serious: Yes (Other)
  Sender: FDA-Public Use
  Company Number: US-TAKEDA-US201943997

PATIENT
  Sex: Male

DRUGS (2)
  1. HUMAN IMMUNOGLOBULIN G [Suspect]
     Active Substance: HUMAN IMMUNOGLOBULIN G
     Indication: Primary immunodeficiency syndrome
     Dosage: UNK
     Route: 042
  2. HUMAN IMMUNOGLOBULIN G [Suspect]
     Active Substance: HUMAN IMMUNOGLOBULIN G
     Dosage: 30 GRAM, MONTHLY
     Route: 042

REACTIONS (15)
  - Lyme disease [Unknown]
  - Lymphadenopathy [Unknown]
  - Nasopharyngitis [Unknown]
  - Neuralgia [Unknown]
  - Illness [Unknown]
  - Brain fog [Unknown]
  - Neurological symptom [Unknown]
  - Peripheral swelling [Unknown]
  - Fibromyalgia [Unknown]
  - Stress [Unknown]
  - Paraesthesia [Unknown]
  - Fatigue [Unknown]
  - Pain [Unknown]
  - Headache [Unknown]
  - Inappropriate schedule of product administration [Unknown]
